FAERS Safety Report 9462487 (Version 1)
Quarter: 2013Q3

REPORT INFORMATION
  Report Type: Spontaneous
  Country: US (occurrence: None)
  Receive Date: 20130815
  Receipt Date: 20130815
  Transmission Date: 20140515
  Serious: Yes (Hospitalization)
  Sender: FDA-Public Use
  Company Number: None

PATIENT
  Age: 51 Year
  Sex: Female
  Weight: 54.89 kg

DRUGS (6)
  1. EXJADE [Suspect]
     Indication: SICKLE CELL ANAEMIA
     Route: 048
  2. LASIX [Concomitant]
  3. HYDROXYUREA [Concomitant]
  4. MEPHYTON TAB [Concomitant]
  5. FOLIC ACID [Concomitant]
  6. LEVAQUIN [Concomitant]

REACTIONS (1)
  - Investigation [None]
